FAERS Safety Report 10458989 (Version 1)
Quarter: 2014Q3

REPORT INFORMATION
  Report Type: Spontaneous
  Country: US (occurrence: None)
  Receive Date: 20140916
  Receipt Date: 20140916
  Transmission Date: 20150326
  Serious: No
  Sender: FDA-Public Use
  Company Number: None

PATIENT
  Sex: Female
  Weight: 69.85 kg

DRUGS (1)
  1. LUNESTA [Suspect]
     Active Substance: ESZOPICLONE
     Indication: INSOMNIA
     Dosage: GENERIC LUNESTA, ONE NIGHTLY, PER ORAL
     Route: 048
     Dates: start: 20140306, end: 201409

REACTIONS (2)
  - Product substitution issue [None]
  - Drug ineffective [None]
